FAERS Safety Report 9662155 (Version 1)
Quarter: 2013Q4

REPORT INFORMATION
  Report Type: Spontaneous
  Country: US (occurrence: US)
  Receive Date: 20131031
  Receipt Date: 20131031
  Transmission Date: 20140711
  Serious: No
  Sender: FDA-Public Use
  Company Number: US-PURDUE-USA-2011-0068816

PATIENT
  Age: 8 Month
  Sex: Female

DRUGS (1)
  1. OXYCODONE HYDROCHLORIDE (SIMILAR TO NDA 22-272) [Suspect]
     Indication: FOETAL EXPOSURE DURING PREGNANCY

REACTIONS (7)
  - Drug withdrawal syndrome neonatal [Unknown]
  - Respiratory disorder [Unknown]
  - Screaming [Unknown]
  - Cough [Unknown]
  - Foetal exposure during pregnancy [Unknown]
  - Drug screen positive [Unknown]
  - Feeding disorder of infancy or early childhood [Unknown]
